FAERS Safety Report 7392876-3 (Version None)
Quarter: 2011Q2

REPORT INFORMATION
  Report Type: 
  Country: None (occurrence: None)
  Receive Date: 20110404
  Receipt Date: 20110328
  Transmission Date: 20111010
  Serious: Yes (Other)
  Sender: FDA-Public Use
  Company Number: CZ-BAXTER-2010BH021048

PATIENT
  Age: 42 Year
  Sex: Female

DRUGS (5)
  1. GAMMAGARD LIQUID [Suspect]
     Indication: IMMUNODEFICIENCY
     Route: 042
     Dates: start: 20100806, end: 20100806
  2. GAMMAGARD LIQUID [Suspect]
     Route: 042
  3. AERIUS [Concomitant]
     Indication: PREMEDICATION
     Route: 048
     Dates: start: 20100806, end: 20100806
  4. SOLU-MEDROL [Concomitant]
     Indication: PREMEDICATION
     Route: 042
     Dates: start: 20100806, end: 20100806
  5. SODIUM CHLORIDE 0.9% IN PLASTIC CONTAINER [Concomitant]
     Indication: PREMEDICATION
     Route: 042
     Dates: start: 20100806, end: 20100806

REACTIONS (7)
  - CYANOSIS [None]
  - HYPERSENSITIVITY [None]
  - RESTLESSNESS [None]
  - CHEST DISCOMFORT [None]
  - DYSPNOEA [None]
  - NAUSEA [None]
  - INFUSION RELATED REACTION [None]
